FAERS Safety Report 17554876 (Version 4)
Quarter: 2020Q2

REPORT INFORMATION
  Report Type: Spontaneous
  Country: US (occurrence: US)
  Receive Date: 20200318
  Receipt Date: 20200617
  Transmission Date: 20200713
  Serious: No
  Sender: FDA-Public Use
  Company Number: US-PFIZER INC-2018436220

PATIENT
  Age: 86 Year
  Sex: Male

DRUGS (2)
  1. LYRICA [Suspect]
     Active Substance: PREGABALIN
     Indication: NEUROPATHY PERIPHERAL
     Dosage: 200 MG, 2X/DAY (TAKE 1 CAPSULE IN THE A.M. AND 1 CAPSULE IN THE P.M)
  2. LYRICA [Suspect]
     Active Substance: PREGABALIN
     Indication: GASTROOESOPHAGEAL REFLUX DISEASE

REACTIONS (2)
  - Memory impairment [Unknown]
  - Hypoacusis [Unknown]
